FAERS Safety Report 6536466-0 (Version None)
Quarter: 2010Q1

REPORT INFORMATION
  Report Type: 
  Country: None (occurrence: None)
  Receive Date: 20100106
  Receipt Date: 20091222
  Transmission Date: 20100710
  Serious: Yes (Other)
  Sender: FDA-Public Use
  Company Number: 2009003923

PATIENT
  Age: 54 Year
  Sex: Male

DRUGS (3)
  1. ERLOTINIB HYDROCHLORIDE [Suspect]
     Dosage: (150 MG), ORAL
     Route: 048
  2. CAPECITABINE [Suspect]
     Dosage: (500 MG), ORAL
     Route: 048
     Dates: start: 20090929
  3. THALOMID [Suspect]
     Indication: DRUG USE FOR UNKNOWN INDICATION
     Dosage: (100 MG, QD), ORAL
     Route: 048

REACTIONS (4)
  - BLOOD ALBUMIN DECREASED [None]
  - FULL BLOOD COUNT DECREASED [None]
  - METASTASES TO PANCREAS [None]
  - OEDEMA PERIPHERAL [None]
